FAERS Safety Report 24754896 (Version 1)
Quarter: 2024Q4

REPORT INFORMATION
  Report Type: Spontaneous
  Country: US (occurrence: US)
  Receive Date: 20241219
  Receipt Date: 20241219
  Transmission Date: 20250114
  Serious: Yes (Other)
  Sender: AMGEN
  Company Number: US-AMGEN-USASP2024247083

PATIENT
  Age: 61 Year
  Sex: Female

DRUGS (1)
  1. TARLATAMAB [Suspect]
     Active Substance: TARLATAMAB
     Indication: Carcinoid tumour pulmonary
     Dosage: UNK
     Route: 065

REACTIONS (5)
  - Metastases to central nervous system [Unknown]
  - Drug effective for unapproved indication [Unknown]
  - Off label use [Unknown]
  - Fatigue [Recovered/Resolved]
  - Dysgeusia [Unknown]
